FAERS Safety Report 10103146 (Version 1)
Quarter: 2014Q2

REPORT INFORMATION
  Report Type: Spontaneous
  Country: US (occurrence: US)
  Receive Date: 20140424
  Receipt Date: 20140424
  Transmission Date: 20141212
  Serious: No
  Sender: FDA-Public Use
  Company Number: US-BRISTOL-MYERS SQUIBB COMPANY-20130753

PATIENT
  Age: 58 Year
  Sex: Male
  Weight: 108.84 kg

DRUGS (5)
  1. ELIQUIS [Suspect]
  2. DIOVAN HCT [Concomitant]
     Dosage: 1 DF= 160/12.5MG
  3. BYSTOLIC [Concomitant]
  4. MULTIVITAMINS [Concomitant]
  5. VITAMIN B [Concomitant]

REACTIONS (2)
  - Rash [Unknown]
  - Pruritus [Unknown]
